FAERS Safety Report 9369599 (Version 1)
Quarter: 2013Q2

REPORT INFORMATION
  Report Type: Spontaneous
  Country: FR (occurrence: FR)
  Receive Date: 20130626
  Receipt Date: 20130626
  Transmission Date: 20140414
  Serious: Yes (Hospitalization)
  Sender: FDA-Public Use
  Company Number: FR-BAYER-2013-077824

PATIENT
  Age: 62 Year
  Sex: Female

DRUGS (1)
  1. IZILOX [Suspect]
     Indication: SINUSITIS
     Dosage: 1 DF, QD

REACTIONS (1)
  - Migraine [None]
